FAERS Safety Report 16782076 (Version 1)
Quarter: 2019Q3

REPORT INFORMATION
  Report Type: Spontaneous
  Country: DE (occurrence: DE)
  Receive Date: 20190906
  Receipt Date: 20190906
  Transmission Date: 20191005
  Serious: Yes (Other)
  Sender: FDA-Public Use
  Company Number: DE-ELI_LILLY_AND_COMPANY-DE201908014017

PATIENT
  Age: 64 Year
  Sex: Male

DRUGS (2)
  1. HUMINSULIN REGULAR [Suspect]
     Active Substance: INSULIN HUMAN
     Indication: TYPE 2 DIABETES MELLITUS
     Dosage: 10 INTERNATIONAL UNIT, UNKNOWN
     Route: 058
     Dates: start: 2002
  2. HUMULIN N [Suspect]
     Active Substance: INSULIN HUMAN
     Indication: TYPE 2 DIABETES MELLITUS
     Dosage: 16 INTERNATIONAL UNIT, UNKNOWN
     Route: 058
     Dates: start: 2002

REACTIONS (5)
  - Eye haemorrhage [Unknown]
  - Cerebrovascular accident [Unknown]
  - Eye oedema [Unknown]
  - Drug ineffective [Unknown]
  - Blood glucose increased [Unknown]

NARRATIVE: CASE EVENT DATE: 20190805
